FAERS Safety Report 8536525-7 (Version None)
Quarter: 2012Q3

REPORT INFORMATION
  Report Type: 
  Country: None (occurrence: None)
  Receive Date: 20120725
  Receipt Date: 20120711
  Transmission Date: 20120928
  Serious: Yes (Hospitalization)
  Sender: FDA-Public Use
  Company Number: ZA-MYLANLABS-2012S1014487

PATIENT
  Age: 34 Year
  Sex: Male

DRUGS (8)
  1. ETHAMBUTOL HYDROCHLORIDE [Concomitant]
     Indication: PULMONARY TUBERCULOSIS
     Route: 065
  2. PYRAZINAMIDE [Concomitant]
     Indication: PULMONARY TUBERCULOSIS
     Route: 065
  3. STAVUDINE [Suspect]
     Indication: HIV INFECTION
     Route: 065
  4. ISONIAZID [Concomitant]
     Indication: PULMONARY TUBERCULOSIS
     Route: 065
  5. PREDNISONE [Concomitant]
     Indication: IMMUNE RECONSTITUTION SYNDROME
     Dosage: 100MG DAILY INITIALLY [SUBSEQUENT DOSAGE NOT STATED]
     Route: 065
  6. LAMIVUDINE [Suspect]
     Indication: HIV INFECTION
     Route: 065
  7. EFAVIRENZ [Suspect]
     Indication: HIV INFECTION
     Route: 065
  8. RIFAMPICIN [Concomitant]
     Indication: PULMONARY TUBERCULOSIS
     Route: 065

REACTIONS (5)
  - CARDIAC FAILURE [None]
  - IMMUNE RECONSTITUTION SYNDROME [None]
  - CONGESTIVE CARDIOMYOPATHY [None]
  - CONDITION AGGRAVATED [None]
  - CARDIOGENIC SHOCK [None]
